FAERS Safety Report 7406848-3 (Version None)
Quarter: 2011Q2

REPORT INFORMATION
  Report Type: 
  Country: None (occurrence: None)
  Receive Date: 20110406
  Receipt Date: 20110406
  Transmission Date: 20111010
  Serious: Yes (Hospitalization)
  Sender: FDA-Public Use
  Company Number: None

PATIENT
  Sex: Female
  Weight: 54.54 kg

DRUGS (7)
  1. MIRLAX [Concomitant]
  2. TAXOL [Suspect]
     Dosage: 250 MG
     Dates: end: 20110328
  3. ZOFRAN [Concomitant]
  4. ADVAIR HFA [Concomitant]
  5. SENOKOT [Concomitant]
  6. CARBOPLATIN [Suspect]
     Dosage: 536 MG
     Dates: end: 20110321
  7. ACCUPRIL [Concomitant]

REACTIONS (1)
  - SMALL INTESTINAL OBSTRUCTION [None]
